FAERS Safety Report 4723431-9 (Version None)
Quarter: 2005Q3

REPORT INFORMATION
  Report Type: 
  Country: None (occurrence: None)
  Receive Date: 20050725
  Receipt Date: 20050610
  Transmission Date: 20060218
  Serious: Yes (Life-Threatening)
  Sender: FDA-Public Use
  Company Number: 2005AP03278

PATIENT
  Age: 28760 Day
  Sex: Male

DRUGS (4)
  1. SEROQUEL [Suspect]
     Indication: DELIRIUM
     Route: 048
     Dates: start: 20050411, end: 20050411
  2. PAM [Concomitant]
     Indication: DRUG TOXICITY
     Route: 041
     Dates: start: 20050409, end: 20050409
  3. ATROPINE SULFATE [Concomitant]
     Indication: DRUG TOXICITY
     Route: 042
     Dates: start: 20050409, end: 20050410
  4. PROPOFOL [Concomitant]
     Indication: DELIRIUM
     Route: 041
     Dates: start: 20050410, end: 20050411

REACTIONS (1)
  - DEPRESSED LEVEL OF CONSCIOUSNESS [None]
